FAERS Safety Report 18127219 (Version 3)
Quarter: 2020Q4

REPORT INFORMATION
  Report Type: Spontaneous
  Country: US (occurrence: US)
  Receive Date: 20200810
  Receipt Date: 20201015
  Transmission Date: 20210113
  Serious: Yes (Hospitalization)
  Sender: FDA-Public Use
  Company Number: US-ROCHE-2655875

PATIENT
  Age: 29 Year
  Sex: Male

DRUGS (1)
  1. HEMLIBRA [Suspect]
     Active Substance: EMICIZUMAB-KXWH
     Indication: FACTOR VIII DEFICIENCY
     Dosage: 105MG/0.7ML
     Route: 058
     Dates: start: 20181109

REACTIONS (2)
  - Epstein-Barr virus infection [Unknown]
  - Septic shock [Unknown]

NARRATIVE: CASE EVENT DATE: 20200731
